FAERS Safety Report 4455792-2 (Version None)
Quarter: 2004Q3

REPORT INFORMATION
  Report Type: 
  Country: None (occurrence: None)
  Receive Date: 20040920
  Receipt Date: 20040903
  Transmission Date: 20050211
  Serious: Yes (Other)
  Sender: FDA-Public Use
  Company Number: US013701

PATIENT
  Age: 24 Month
  Sex: Male
  Weight: 18.1439 kg

DRUGS (1)
  1. ACTIQ [Suspect]
     Dosage: 600 MG ONCE BUCCAL
     Route: 002
     Dates: start: 20040902, end: 20040902

REACTIONS (2)
  - ACCIDENTAL EXPOSURE [None]
  - NO ADVERSE EFFECT [None]
